FAERS Safety Report 8987253 (Version 1)
Quarter: 2012Q4

REPORT INFORMATION
  Report Type: 
  Country: US (occurrence: US)
  Receive Date: 20121227
  Receipt Date: 20121227
  Transmission Date: 20130627
  Serious: Yes (Other)
  Sender: FDA-Public Use
  Company Number: US-ELI_LILLY_AND_COMPANY-US201212007054

PATIENT
  Sex: Female

DRUGS (5)
  1. HUMALOG LISPRO [Suspect]
     Dosage: UNK UNK, prn
     Dates: start: 1984, end: 2011
  2. HUMALOG LISPRO [Suspect]
     Indication: TYPE 2 DIABETES MELLITUS
     Dosage: UNK UNK, prn
     Dates: start: 201212
  3. HUMALOG LISPRO [Suspect]
     Dosage: UNK UNK, prn
  4. GLIBOMET [Concomitant]
     Dosage: 500 mg, unknown
  5. NOVOLOG [Concomitant]

REACTIONS (7)
  - Retinal oedema [Recovering/Resolving]
  - Retinal haemorrhage [Recovering/Resolving]
  - Eye disorder [Unknown]
  - Hypermetropia [Unknown]
  - Blood glucose abnormal [Recovering/Resolving]
  - Blood glucose increased [Recovering/Resolving]
  - Glycosylated haemoglobin increased [Unknown]
